FAERS Safety Report 21330456 (Version 3)
Quarter: 2023Q1

REPORT INFORMATION
  Report Type: Report from Study
  Country: TR (occurrence: TR)
  Receive Date: 20220913
  Receipt Date: 20230126
  Transmission Date: 20230418
  Serious: Yes (Hospitalization)
  Sender: FDA-Public Use
  Company Number: TR-JNJFOC-20220911920

PATIENT
  Age: 62 Year
  Sex: Male

DRUGS (28)
  1. AMIVANTAMAB [Suspect]
     Active Substance: AMIVANTAMAB
     Indication: Non-small cell lung cancer metastatic
     Dosage: LAST DOSE NOTED ON 29-JUL-2022
     Route: 042
     Dates: start: 20220302
  2. PEMETREXED [Suspect]
     Active Substance: PEMETREXED
     Indication: Non-small cell lung cancer metastatic
     Dosage: LAST DOSE NOTED ON 29-JUL-2022
     Route: 042
     Dates: start: 20220302
  3. CARBOPLATIN [Concomitant]
     Active Substance: CARBOPLATIN
     Indication: Non-small cell lung cancer metastatic
     Route: 042
     Dates: start: 20220302, end: 20220506
  4. GERALGINE PLUS [Concomitant]
     Indication: Pain
     Route: 048
     Dates: start: 20210504
  5. COLCHICINE [Concomitant]
     Active Substance: COLCHICINE
     Indication: Pericardial effusion
     Route: 048
     Dates: start: 20210504
  6. CRESTOR [Concomitant]
     Active Substance: ROSUVASTATIN CALCIUM
     Indication: Prophylaxis
     Route: 048
     Dates: start: 20220301
  7. METOPROLOL SUCCINATE [Concomitant]
     Active Substance: METOPROLOL SUCCINATE
     Indication: Prophylaxis
     Route: 048
     Dates: start: 20220301
  8. ASPIRIN [Concomitant]
     Active Substance: ASPIRIN
     Indication: Prophylaxis
     Route: 048
     Dates: start: 20220301
  9. AERIUS (DESLORATADINE) [Concomitant]
     Active Substance: DESLORATADINE
     Indication: Chemotherapy side effect prophylaxis
     Route: 048
     Dates: start: 20220302
  10. PAROL [Concomitant]
     Active Substance: ACETAMINOPHEN
     Indication: Chemotherapy side effect prophylaxis
     Route: 048
     Dates: start: 20220302
  11. RESOURCE 2.0+FIBRE [Concomitant]
     Indication: Decreased appetite
     Route: 048
     Dates: start: 20220310
  12. MEGACE [Concomitant]
     Active Substance: MEGESTROL ACETATE
     Indication: Decreased appetite
     Route: 048
     Dates: start: 20220315
  13. DUPHALAC [Concomitant]
     Active Substance: LACTULOSE
     Indication: Constipation
     Route: 048
     Dates: start: 20220316
  14. SIPRAKTIN [Concomitant]
     Indication: Decreased appetite
     Route: 048
     Dates: start: 20220331
  15. SIPRAKTIN [Concomitant]
     Indication: Weight decreased
  16. MAGNORM [Concomitant]
     Indication: Decreased appetite
     Route: 048
     Dates: start: 20220331
  17. MAGNORM [Concomitant]
     Indication: Fatigue
  18. MAGNORM [Concomitant]
     Indication: Hypomagnesaemia
  19. CALCIMAX D3 [CALCIUM CARBONATE;COLECALCIFEROL] [Concomitant]
     Indication: Decreased appetite
     Route: 048
     Dates: start: 20220331
  20. PROGAS [Concomitant]
     Indication: Prophylaxis of nausea and vomiting
     Route: 042
     Dates: start: 20220726, end: 20220829
  21. PROGAS [Concomitant]
     Route: 042
     Dates: start: 20220904, end: 20220907
  22. ENSURE NUTRIVIGOR [Concomitant]
     Indication: Decreased appetite
     Route: 048
     Dates: start: 20220727, end: 20220829
  23. HERAJIT [Concomitant]
     Indication: Haemoptysis
     Route: 042
     Dates: start: 20220728, end: 20220829
  24. FENOKODIN [Concomitant]
     Indication: Productive cough
     Route: 048
     Dates: start: 20220802, end: 20220829
  25. FENOKODIN [Concomitant]
     Route: 048
     Dates: start: 20220904, end: 20220907
  26. PERIOLIMEL N4E [Concomitant]
     Indication: Decreased appetite
     Route: 042
     Dates: start: 20220820, end: 20220820
  27. PANTO [PANTOPRAZOLE SODIUM SESQUIHYDRATE] [Concomitant]
     Active Substance: PANTOPRAZOLE SODIUM
     Indication: Gastrointestinal disorder therapy
     Route: 048
     Dates: start: 20220101
  28. ANDOREX [Concomitant]
     Indication: Infection prophylaxis
     Dosage: ^1^ NO UNIT PROVIDED
     Route: 048
     Dates: start: 20220718

REACTIONS (1)
  - Tumour pain [Not Recovered/Not Resolved]

NARRATIVE: CASE EVENT DATE: 20220903
